FAERS Safety Report 8181570-7 (Version None)
Quarter: 2012Q1

REPORT INFORMATION
  Report Type: 
  Country: None (occurrence: None)
  Receive Date: 20120302
  Receipt Date: 20120227
  Transmission Date: 20120608
  Serious: No
  Sender: FDA-Public Use
  Company Number: US-PFIZER INC-2012022865

PATIENT
  Sex: Female

DRUGS (16)
  1. METFORMIN [Concomitant]
     Dosage: 2500MG DAILY
  2. LORTAB [Concomitant]
     Dosage: 10 MG, 4X/DAY
  3. SENNA [Concomitant]
     Dosage: 8 MG, 4X/DAY
  4. FLEXERIL [Concomitant]
     Dosage: 10 MG, 2X/DAY
  5. BECONASE AQUA [Concomitant]
     Dosage: 2 SPRAYS EACH SIDE 2 TIMES DAILY
  6. GLIPIZIDE [Concomitant]
     Dosage: 5 MG, 1X/DAY
  7. PROVENTIL [Concomitant]
     Dosage: 1-2 PUFFS (AS NEEDED) 4 TIMES DAILY
  8. NEURONTIN [Suspect]
     Dosage: 300 MG, 4X/DAY
  9. COZAAR [Concomitant]
     Dosage: 100 MG, 1X/DAY
  10. VALIUM [Concomitant]
     Dosage: 5 MG, 2X/DAY
  11. ADVAIR DISKUS 100/50 [Concomitant]
     Dosage: 100/50 2 TIMES DAILY
  12. ARTHROTEC [Suspect]
     Dosage: 75 MG, 1X/DAY
  13. ATENOLOL [Concomitant]
     Dosage: 50 MG, 2X/DAY
  14. CRESTOR [Concomitant]
     Dosage: 10 MG, 1X/DAY
  15. CETIRIZINE HCL [Concomitant]
     Dosage: 10 MG, 1X/DAY
  16. EQUATE [Concomitant]
     Dosage: 25 MG, 2X/DAY

REACTIONS (1)
  - NERVOUSNESS [None]
